FAERS Safety Report 15061639 (Version 1)
Quarter: 2018Q2

REPORT INFORMATION
  Report Type: Report from Study
  Country: FR (occurrence: FR)
  Receive Date: 20180625
  Receipt Date: 20180625
  Transmission Date: 20180711
  Serious: Yes (Hospitalization)
  Sender: FDA-Public Use
  Company Number: FR-BRISTOL-MYERS SQUIBB COMPANY-BMS-2018-057343

PATIENT
  Age: 74 Year
  Sex: Male
  Weight: 62 kg

DRUGS (3)
  1. NIVOLUMAB [Suspect]
     Active Substance: NIVOLUMAB
     Indication: MALIGNANT MELANOMA
     Dosage: 1 MG/KG, Q3WK
     Route: 042
     Dates: start: 20180202
  2. IPILIMUMAB [Suspect]
     Active Substance: IPILIMUMAB
     Indication: MALIGNANT MELANOMA
     Dosage: 3 MG/KG, Q3WK
     Route: 042
     Dates: start: 20180202
  3. CERTOLIZUMAB [Suspect]
     Active Substance: CERTOLIZUMAB
     Indication: MALIGNANT MELANOMA
     Dosage: 400 MG, Q3WK
     Route: 058
     Dates: start: 20180202

REACTIONS (1)
  - Hypoalbuminaemia [Recovered/Resolved]

NARRATIVE: CASE EVENT DATE: 20180611
